FAERS Safety Report 9718976 (Version 2)
Quarter: 2013Q4

REPORT INFORMATION
  Report Type: Report from Study
  Country: GB (occurrence: GB)
  Receive Date: 20131127
  Receipt Date: 20131202
  Transmission Date: 20140711
  Serious: Yes (Hospitalization)
  Sender: FDA-Public Use
  Company Number: GB-TEVA-447573USA

PATIENT
  Age: 61 Year
  Sex: Female

DRUGS (13)
  1. BENDAMUSTINE [Suspect]
     Indication: NON-HODGKIN^S LYMPHOMA
     Dosage: EVERY FOUR WEEKS
     Route: 042
     Dates: start: 20130708
  2. BENDAMUSTINE [Suspect]
     Dosage: EVERY FOUR WEEKS
     Route: 042
     Dates: start: 20130930
  3. RITUXIMAB [Suspect]
     Indication: NON-HODGKIN^S LYMPHOMA
     Dosage: EVERY FOUR WEEKS
     Route: 042
     Dates: start: 20130708
  4. RITUXIMAB [Suspect]
     Dosage: EVERY FOUR WEEKS, VOLUME OF 587 ML
     Route: 042
     Dates: start: 20130930
  5. LANSOPRAZOLE [Concomitant]
     Dates: start: 20130515
  6. ENOXAPARIN [Concomitant]
     Route: 058
     Dates: start: 20130614
  7. ONDANSETRON [Concomitant]
     Dates: start: 20130708
  8. ACICLOVIR [Concomitant]
     Dates: start: 20130715
  9. FLUCONAZOLE [Concomitant]
     Dates: start: 20130715
  10. CO-TRIMOXAZOLE [Concomitant]
     Dates: start: 20130708
  11. LACTULOSE [Concomitant]
     Indication: CONSTIPATION
     Dates: start: 20130812
  12. FILGRASTIM [Concomitant]
     Indication: NEUTROPENIA
     Dates: start: 20131104, end: 20131107
  13. RED BLOOD CELLS [Concomitant]
     Indication: PRODUCT USED FOR UNKNOWN INDICATION

REACTIONS (1)
  - Hypercalcaemia [Recovered/Resolved]
